FAERS Safety Report 5413324-6 (Version None)
Quarter: 2007Q3

REPORT INFORMATION
  Report Type: 
  Country: None (occurrence: None)
  Receive Date: 20070810
  Receipt Date: 20070726
  Transmission Date: 20080115
  Serious: Yes (Other)
  Sender: FDA-Public Use
  Company Number: 07H-163-0312965-00

PATIENT
  Age: 46 Year
  Sex: Female

DRUGS (4)
  1. HEPARIN SODIUM INJECTION [Suspect]
     Indication: INTRAVENOUS CATHETER MANAGEMENT
     Dosage: 500 UNIT, ONCE, CATHETER FLUSH, 80 UNITS/KG, INTRAVENOUS BOLUS, 18 UNITS/G/H, INTRAVENOUS DRIP
  2. HEPARIN SODIUM INJECTION [Suspect]
     Indication: MESENTERIC VEIN THROMBOSIS
     Dosage: 500 UNIT, ONCE, CATHETER FLUSH, 80 UNITS/KG, INTRAVENOUS BOLUS, 18 UNITS/G/H, INTRAVENOUS DRIP
  3. LEUCOVORIN CALCIUM [Suspect]
     Indication: COLON CANCER STAGE III
  4. FLUOROURACIL [Suspect]
     Indication: COLON CANCER STAGE III

REACTIONS (8)
  - ABDOMINAL PAIN [None]
  - DEHYDRATION [None]
  - DIARRHOEA [None]
  - HEPARIN-INDUCED THROMBOCYTOPENIA [None]
  - MESENTERIC VEIN THROMBOSIS [None]
  - MYOCARDIAL INFARCTION [None]
  - NAUSEA [None]
  - VOMITING [None]
